FAERS Safety Report 7884847-5 (Version None)
Quarter: 2011Q4

REPORT INFORMATION
  Report Type: 
  Country: None (occurrence: None)
  Receive Date: 20111102
  Receipt Date: 20111024
  Transmission Date: 20120403
  Serious: Yes (Hospitalization, Other)
  Sender: FDA-Public Use
  Company Number: PHHY2011MX94844

PATIENT
  Age: 71 Year
  Sex: Female

DRUGS (1)
  1. DIOVAN HCT [Suspect]
     Indication: HYPERTENSION
     Dosage: 1 DF, (80/12.5 MG PER DAY)
     Dates: start: 20100801

REACTIONS (2)
  - SENSATION OF HEAVINESS [None]
  - HYPERTENSION [None]
